FAERS Safety Report 12257651 (Version 2)
Quarter: 2017Q1

REPORT INFORMATION
  Report Type: Spontaneous
  Country: US (occurrence: US)
  Receive Date: 20160412
  Receipt Date: 20170216
  Transmission Date: 20170428
  Serious: Yes (Life-Threatening)
  Sender: FDA-Public Use
  Company Number: US-MALLINCKRODT-T201601258

PATIENT
  Age: 5 Month

DRUGS (4)
  1. INOMAX [Suspect]
     Active Substance: NITRIC OXIDE
     Dosage: INCREASED TO 80 PPM, CONTINUOUS
     Dates: start: 20160401, end: 20160401
  2. INOMAX [Suspect]
     Active Substance: NITRIC OXIDE
     Dosage: 40 PPM, CONTINUOUS
     Dates: start: 20160401
  3. INOMAX [Suspect]
     Active Substance: NITRIC OXIDE
     Indication: PRODUCT USED FOR UNKNOWN INDICATION
     Dosage: 40 PPM, CONTINUOUS
     Dates: start: 20160329, end: 20160401
  4. ALBUTEROL. [Concomitant]
     Active Substance: ALBUTEROL
     Dosage: 2.5 MG IN NSS VIA THE AEROGEN NEBULIZER Q4HRS

REACTIONS (5)
  - Oxygen saturation decreased [Recovered/Resolved]
  - Bradycardia [Recovered/Resolved]
  - Agitation [Recovered/Resolved]
  - Off label use [Not Recovered/Not Resolved]
  - Device issue [Unknown]

NARRATIVE: CASE EVENT DATE: 20160401
